FAERS Safety Report 17144938 (Version 1)
Quarter: 2019Q4

REPORT INFORMATION
  Report Type: Spontaneous
  Country: US (occurrence: US)
  Receive Date: 20191120
  Receipt Date: 20191120
  Transmission Date: 20200122
  Serious: No
  Sender: FDA-Public Use
  Company Number: None

PATIENT
  Sex: Female

DRUGS (8)
  1. CREON [Concomitant]
     Active Substance: PANCRELIPASE AMYLASE\PANCRELIPASE LIPASE\PANCRELIPASE PROTEASE
  2. BD PEN NEEDLE [Concomitant]
  3. AMITRIPTLYN [Concomitant]
  4. COLESEVELAM [Concomitant]
     Active Substance: COLESEVELAM
  5. AUGMENTIN [Concomitant]
     Active Substance: AMOXICILLIN\CLAVULANATE POTASSIUM
  6. HYOSCYAMIN [Concomitant]
  7. OCALIVA [Suspect]
     Active Substance: OBETICHOLIC ACID
     Indication: PRIMARY BILIARY CHOLANGITIS
     Route: 048
     Dates: start: 20180918
  8. MIS [Concomitant]

REACTIONS (5)
  - Dizziness [None]
  - Abdominal pain [None]
  - Product dose omission [None]
  - Arthralgia [None]
  - Pruritus [None]
